FAERS Safety Report 9858166 (Version 1)
Quarter: 2014Q1

REPORT INFORMATION
  Report Type: Spontaneous
  Country: US (occurrence: None)
  Receive Date: 20140130
  Receipt Date: 20140130
  Transmission Date: 20141002
  Serious: Yes (Other)
  Sender: FDA-Public Use
  Company Number: None

PATIENT
  Age: 69 Year
  Sex: Male
  Weight: 81.65 kg

DRUGS (1)
  1. PROSCAR [Suspect]
     Indication: PROSTATE CANCER
     Dates: start: 20090624, end: 20111017

REACTIONS (6)
  - Testicular pain [None]
  - Testicular atrophy [None]
  - Ejaculation disorder [None]
  - Blood testosterone decreased [None]
  - Blood luteinising hormone decreased [None]
  - Blood follicle stimulating hormone decreased [None]
